FAERS Safety Report 25027748 (Version 1)
Quarter: 2025Q1

REPORT INFORMATION
  Report Type: Spontaneous
  Country: US (occurrence: US)
  Receive Date: 20250301
  Receipt Date: 20250301
  Transmission Date: 20250409
  Serious: No
  Sender: SANOFI AVENTIS
  Company Number: US-SA-2025SA056954

PATIENT
  Age: 62 Year
  Sex: Female

DRUGS (14)
  1. DUPIXENT [Suspect]
     Active Substance: DUPILUMAB
     Indication: Asthma
     Route: 058
     Dates: start: 20240703
  2. CLARITHROMYCIN [Concomitant]
     Active Substance: CLARITHROMYCIN
  3. CALCIUM [Concomitant]
     Active Substance: CALCIUM
  4. ZYRTEC [Concomitant]
     Active Substance: CETIRIZINE HYDROCHLORIDE
  5. FLUTICASONE [Concomitant]
     Active Substance: FLUTICASONE
  6. AMLODIPINE [Concomitant]
     Active Substance: AMLODIPINE BESYLATE
  7. ALBUTEROL [Concomitant]
     Active Substance: ALBUTEROL
  8. MONTELUKAST [Concomitant]
     Active Substance: MONTELUKAST
  9. NOVOLOG [Concomitant]
     Active Substance: INSULIN ASPART
  10. FASENRA [Concomitant]
     Active Substance: BENRALIZUMAB
  11. LOSARTAN [Concomitant]
     Active Substance: LOSARTAN
  12. BUDESONIDE [Concomitant]
     Active Substance: BUDESONIDE
  13. PRAVASTATIN [Concomitant]
     Active Substance: PRAVASTATIN
  14. MELATONIN [Concomitant]
     Active Substance: MELATONIN

REACTIONS (2)
  - Nasal dryness [Unknown]
  - Nausea [Unknown]

NARRATIVE: CASE EVENT DATE: 20250221
